FAERS Safety Report 19861056 (Version 1)
Quarter: 2021Q3

REPORT INFORMATION
  Report Type: Spontaneous
  Country: DE (occurrence: DE)
  Receive Date: 20210920
  Receipt Date: 20210920
  Transmission Date: 20211014
  Serious: Yes (Hospitalization)
  Sender: FDA-Public Use
  Company Number: DE-PFIZER INC-202101192790

PATIENT
  Age: 63 Year
  Sex: Male
  Weight: 61 kg

DRUGS (7)
  1. SPIRONOLACTON [Suspect]
     Active Substance: SPIRONOLACTONE
     Dosage: 50 MILLIGRAM 2 DOSE DAILY
     Route: 065
  2. SITAGLIPTIN [Concomitant]
     Active Substance: SITAGLIPTIN
     Dosage: 100 MILLIGRAM, QD
     Route: 065
  3. PANTOPRAZOLE [Suspect]
     Active Substance: PANTOPRAZOLE
     Dosage: 40 MG, 1X/DAY
     Route: 065
  4. LACTULOSE. [Concomitant]
     Active Substance: LACTULOSE
     Dosage: 3.335 GRAM
  5. KALIUM [POTASSIUM] [Concomitant]
     Active Substance: POTASSIUM
     Dosage: 200 MILLIGRAM, BID
     Route: 065
  6. FUROSEMIDE. [Suspect]
     Active Substance: FUROSEMIDE
     Dosage: 40 MILLIGRAM 2 DOSE DAILY
     Route: 065
  7. ORNITHINE ASPARTATE [Concomitant]
     Active Substance: ORNITHINE ASPARTATE
     Dosage: 3 GRAM, BID

REACTIONS (9)
  - Condition aggravated [Unknown]
  - Abdominal pain [Unknown]
  - Disorientation [Unknown]
  - General physical health deterioration [Unknown]
  - Confusional state [Unknown]
  - Hyponatraemia [Unknown]
  - Depressed mood [Unknown]
  - Anaemia [Unknown]
  - Oedema peripheral [Unknown]
